FAERS Safety Report 7168362-2 (Version None)
Quarter: 2010Q4

REPORT INFORMATION
  Report Type: 
  Country: None (occurrence: None)
  Receive Date: 20101216
  Receipt Date: 20101206
  Transmission Date: 20110411
  Serious: Yes (Hospitalization)
  Sender: FDA-Public Use
  Company Number: US-AMGEN-USACT2010007725

PATIENT
  Sex: Female

DRUGS (1)
  1. CINACALCET HYDROCHLORIDE [Suspect]
     Dosage: 30 MG, 3 TIMES/WK
     Dates: start: 20060104, end: 20060206

REACTIONS (1)
  - UNRESPONSIVE TO STIMULI [None]
